FAERS Safety Report 22284304 (Version 1)
Quarter: 2023Q2

REPORT INFORMATION
  Report Type: Spontaneous
  Country: DE (occurrence: DE)
  Receive Date: 20230504
  Receipt Date: 20230504
  Transmission Date: 20230721
  Serious: Yes (Hospitalization, Disabling, Other)
  Sender: FDA-Public Use
  Company Number: DE-002147023-NVSC2023DE084071

PATIENT
  Sex: Male
  Weight: 150 kg

DRUGS (45)
  1. SPIRONOLACTONE [Suspect]
     Active Substance: SPIRONOLACTONE
     Indication: Cardiac failure
     Dosage: UNK
     Route: 065
  2. AMIODARONE [Suspect]
     Active Substance: AMIODARONE
     Indication: Atrial fibrillation
     Dosage: UNK
     Route: 065
  3. VALSARTAN [Suspect]
     Active Substance: VALSARTAN
     Indication: Hypertension
     Dosage: BID (ONCE IN THE MORNING, EVENING (1-0-1))
     Route: 065
  4. VALSARTAN [Suspect]
     Active Substance: VALSARTAN
     Dosage: 320 MG, QD (IN THE MORNING)
     Route: 065
  5. ENTRESTO [Suspect]
     Active Substance: SACUBITRIL\VALSARTAN
     Indication: Dilated cardiomyopathy
     Dosage: UNK, BID (49/51 MG, MORNING AND EVENING)
     Route: 065
  6. ENTRESTO [Suspect]
     Active Substance: SACUBITRIL\VALSARTAN
     Indication: Myocarditis
     Dosage: UNK, BID (97/103 MG, MORNING AND EVENING)
     Route: 065
  7. ONDANSETRON [Concomitant]
     Active Substance: ONDANSETRON
     Indication: Nausea
     Dosage: UNK
     Route: 065
     Dates: start: 20201202, end: 20201202
  8. FAKTU [Concomitant]
     Indication: Haemorrhoidal haemorrhage
     Dosage: QD (SEVERAL TIMES)
     Route: 065
  9. Ampicilline [Concomitant]
     Indication: Surgery
     Dosage: UNK
     Route: 065
     Dates: start: 20201127, end: 20201127
  10. XYLOCAINE [Concomitant]
     Active Substance: LIDOCAINE HYDROCHLORIDE
     Indication: Colonoscopy
     Dosage: 2 % (3ML)
     Route: 065
     Dates: start: 20200701, end: 20200701
  11. XYLOCAINE [Concomitant]
     Active Substance: LIDOCAINE HYDROCHLORIDE
     Dosage: 2 % (3ML)
     Route: 065
     Dates: start: 20200729, end: 20200729
  12. OXYCODONE [Concomitant]
     Active Substance: OXYCODONE
     Indication: Back pain
     Dosage: 3 MG, PRN
     Route: 042
     Dates: start: 20201128, end: 20201128
  13. OXYCODONE [Concomitant]
     Active Substance: OXYCODONE
     Indication: Arthralgia
     Dosage: 3 MG
     Route: 042
     Dates: start: 20201127, end: 20201127
  14. OXYCODONE [Concomitant]
     Active Substance: OXYCODONE
     Indication: Abdominal pain
     Dosage: UNK
     Route: 065
     Dates: start: 20201212, end: 20201212
  15. OXYCODONE [Concomitant]
     Active Substance: OXYCODONE
     Indication: Pain
     Dosage: 10
     Route: 065
     Dates: start: 20201211, end: 20201211
  16. OXYCODONE [Concomitant]
     Active Substance: OXYCODONE
     Dosage: Q8H (10 MG-10 MG-20 MG)
     Route: 065
     Dates: start: 202012
  17. SANDOSTATIN [Concomitant]
     Active Substance: OCTREOTIDE ACETATE
     Indication: Surgery
     Dosage: (FOR 5 DAYS)
     Route: 065
     Dates: start: 20201127, end: 202011
  18. DIAZEPAM [Concomitant]
     Active Substance: DIAZEPAM
     Indication: Product used for unknown indication
     Dosage: 5 MG, BID
     Route: 042
     Dates: start: 20201117, end: 20201117
  19. DIAZEPAM [Concomitant]
     Active Substance: DIAZEPAM
     Dosage: 5 MG, BID
     Route: 042
     Dates: start: 20200616, end: 20200616
  20. LORATADINE [Concomitant]
     Active Substance: LORATADINE
     Indication: Follicular eczema
     Dosage: 1-2 DAILY (14 DAYS)
     Route: 065
     Dates: start: 20200615
  21. ROPIVACAINE [Concomitant]
     Active Substance: ROPIVACAINE
     Indication: Surgery
     Dosage: QD 1X 0.3% (6 ML/H) (MORNING)
     Route: 065
     Dates: start: 20201202, end: 20201202
  22. ROPIVACAINE [Concomitant]
     Active Substance: ROPIVACAINE
     Dosage: QD 1X 0.3% (6 ML/H) (EVENING)
     Route: 065
     Dates: start: 20201201, end: 20201201
  23. ROPIVACAINE [Concomitant]
     Active Substance: ROPIVACAINE
     Dosage: QD 1X 0.3% (6 ML/H) (EVENING)
     Route: 065
     Dates: start: 20201127, end: 20201127
  24. ROPIVACAINE [Concomitant]
     Active Substance: ROPIVACAINE
     Dosage: QD 1X 0.3% (5 ML/H) (EVENING)
     Route: 065
     Dates: start: 20201127, end: 20201127
  25. ROPIVACAINE [Concomitant]
     Active Substance: ROPIVACAINE
     Dosage: BID 1X 0.3% (6 ML/H) (MORNING AND EVENING)
     Route: 065
     Dates: start: 20201128, end: 20201129
  26. ROPIVACAINE [Concomitant]
     Active Substance: ROPIVACAINE
     Dosage: BID 1X 0.3% (6 ML/H) (MORNING AND NOON)
     Route: 065
     Dates: start: 20201130, end: 20201130
  27. BETAMETHASONE VALERATE\FUSIDIC ACID [Concomitant]
     Active Substance: BETAMETHASONE VALERATE\FUSIDIC ACID
     Indication: Follicular eczema
     Dosage: 1.2 PER WEEK (FORMULATION: WASHING SOLUTION)
     Route: 065
     Dates: start: 20200615
  28. DIGITOXIN [Concomitant]
     Active Substance: DIGITOXIN
     Indication: Atrial fibrillation
     Dosage: 1 DOSAGE FORM, QD (MORNING)
     Route: 065
     Dates: start: 202006
  29. ARCOXIA [Concomitant]
     Active Substance: ETORICOXIB
     Indication: Gout
     Dosage: 1X 60 MG BID (MORNING AND EVENING)
     Route: 065
     Dates: start: 20201127
  30. PROPOFOL [Concomitant]
     Active Substance: PROPOFOL
     Indication: Colonoscopy
     Dosage: 440 MG
     Route: 042
     Dates: start: 20201020, end: 20201020
  31. PROPOFOL [Concomitant]
     Active Substance: PROPOFOL
     Indication: Surgery
     Dosage: (FORMULATION: PERFUSOR)
     Route: 065
     Dates: start: 20201127, end: 20201127
  32. PROPOFOL [Concomitant]
     Active Substance: PROPOFOL
     Indication: Ultrasound scan
     Dosage: 280 MG
     Route: 042
     Dates: start: 20201020, end: 20201020
  33. PROPOFOL [Concomitant]
     Active Substance: PROPOFOL
     Dosage: 120 MG
     Route: 042
     Dates: start: 20200629, end: 20200629
  34. PROPOFOL [Concomitant]
     Active Substance: PROPOFOL
     Dosage: 1 % (12ML)
     Route: 065
     Dates: start: 20200629, end: 20200629
  35. FUROSEMIDE [Concomitant]
     Active Substance: FUROSEMIDE
     Indication: Product used for unknown indication
     Dosage: QD (HALF OF 500MG) (MORNING)
     Route: 048
     Dates: start: 202008
  36. FUROSEMIDE [Concomitant]
     Active Substance: FUROSEMIDE
     Dosage: 40 MG
     Route: 042
     Dates: start: 20200614
  37. FUROSEMIDE [Concomitant]
     Active Substance: FUROSEMIDE
     Dosage: UNK, BID ONE FORTH OF 500 MG (MORNING AND NOON)
     Route: 065
  38. OXYGEN [Concomitant]
     Active Substance: OXYGEN
     Indication: Surgery
     Dosage: UNK
     Route: 065
     Dates: start: 20201127, end: 20201127
  39. FAKTU [Concomitant]
     Indication: Haemorrhoidal haemorrhage
     Dosage: UNK, BID
     Route: 065
  40. DIMETHINDENE [Concomitant]
     Active Substance: DIMETHINDENE
     Indication: Product used for unknown indication
     Dosage: 1 MG (FORMULATION: DRAGEE)
     Route: 065
     Dates: start: 20200618
  41. DIMETHINDENE [Concomitant]
     Active Substance: DIMETHINDENE
     Indication: Product used for unknown indication
     Dosage: UNK
     Route: 065
     Dates: end: 20200618
  42. Unacid [Concomitant]
     Indication: Surgery
     Dosage: UNK
     Route: 065
     Dates: start: 20201127, end: 20201127
  43. NALOXONE HYDROCHLORIDE\OXYCODONE HYDROCHLORIDE [Concomitant]
     Active Substance: NALOXONE HYDROCHLORIDE\OXYCODONE HYDROCHLORIDE
     Indication: Arthralgia
     Dosage: HALF
     Route: 065
     Dates: start: 20201207, end: 20201207
  44. NALOXONE HYDROCHLORIDE\OXYCODONE HYDROCHLORIDE [Concomitant]
     Active Substance: NALOXONE HYDROCHLORIDE\OXYCODONE HYDROCHLORIDE
     Indication: Pain in extremity
     Dosage: UNK, Q8H (10/5 MG?10/5MG? 20/10 MG)
     Route: 065
     Dates: start: 20201207
  45. LASIX [Concomitant]
     Active Substance: FUROSEMIDE
     Indication: Product used for unknown indication
     Dosage: BID ONE FORTH OF 500 MG (MORNING AND NOON)
     Route: 065
     Dates: start: 20200618

REACTIONS (48)
  - Intestinal congestion [Unknown]
  - Adenoma benign [Unknown]
  - Haemorrhoidal haemorrhage [Unknown]
  - Cardiac failure [Unknown]
  - Oedema [Unknown]
  - Dyspnoea exertional [Unknown]
  - Rectal polyp [Unknown]
  - Procedural pain [Unknown]
  - Syncope [Recovered/Resolved]
  - Rectal discharge [Unknown]
  - Cardiomyopathy [Unknown]
  - Ventricular hypertrophy [Unknown]
  - Pulmonary hypertension [Unknown]
  - Ascites [Unknown]
  - Peripheral swelling [Unknown]
  - Pustule [Unknown]
  - Lymphocyte morphology abnormal [Unknown]
  - Pruritus [Unknown]
  - Erythema [Unknown]
  - Diverticulum intestinal [Unknown]
  - Gout [Unknown]
  - Acarodermatitis [Recovered/Resolved]
  - Dizziness [Unknown]
  - Asthenia [Unknown]
  - Emphysema [Unknown]
  - Arthropathy [Unknown]
  - Chest discomfort [Unknown]
  - Hepatic steatosis [Unknown]
  - Oedema peripheral [Recovering/Resolving]
  - Depression [Unknown]
  - Gammopathy [Unknown]
  - Anxiety [Unknown]
  - Malaise [Unknown]
  - Skin ulcer [Recovered/Resolved]
  - Wound infection [Unknown]
  - Vertigo [Unknown]
  - Arthralgia [Unknown]
  - Cervicobrachial syndrome [Unknown]
  - Dyspnoea [Unknown]
  - Weight increased [Recovering/Resolving]
  - Ligament pain [Unknown]
  - Papule [Unknown]
  - Blood uric acid increased [Unknown]
  - Joint swelling [Unknown]
  - Hepatomegaly [Unknown]
  - Nausea [Unknown]
  - Drug intolerance [Unknown]
  - Product use in unapproved indication [Unknown]

NARRATIVE: CASE EVENT DATE: 20200101
